FAERS Safety Report 18464311 (Version 1)
Quarter: 2020Q4

REPORT INFORMATION
  Report Type: Report from Study
  Country: DE (occurrence: DE)
  Receive Date: 20201104
  Receipt Date: 20201104
  Transmission Date: 20210114
  Serious: Yes (Other)
  Sender: FDA-Public Use
  Company Number: DE-JAZZ-2019-DE-016586

PATIENT
  Age: 68 Year
  Weight: 72 kg

DRUGS (8)
  1. METHYLPREDNISOLONE. [Concomitant]
     Active Substance: METHYLPREDNISOLONE
     Indication: PROPHYLAXIS
  2. FLUDARABINE [Concomitant]
     Active Substance: FLUDARABINE PHOSPHATE
     Indication: BONE MARROW CONDITIONING REGIMEN
  3. CYTARABINE. [Concomitant]
     Active Substance: CYTARABINE
     Indication: BONE MARROW CONDITIONING REGIMEN
  4. LOW MOLECULAR WEIGHT HEPARIN [Concomitant]
     Active Substance: UNSPECIFIED INGREDIENT
     Indication: PROPHYLAXIS
  5. TREOSULFAN [Concomitant]
     Active Substance: TREOSULFAN
     Indication: BONE MARROW CONDITIONING REGIMEN
  6. DEFITELIO [Suspect]
     Active Substance: DEFIBROTIDE SODIUM
     Indication: PROPHYLAXIS
     Dosage: THERAPY DETAILS NOT PROVIDED
  7. URSODEOXYCHOLIC ACID [Concomitant]
     Active Substance: URSODIOL
     Indication: PROPHYLAXIS
  8. N-ACETYLCYSTEINE [Concomitant]
     Active Substance: ACETYLCYSTEINE
     Indication: PROPHYLAXIS

REACTIONS (2)
  - Venoocclusive disease [Unknown]
  - Intentional product use issue [Unknown]
